FAERS Safety Report 9837256 (Version 1)
Quarter: 2014Q1

REPORT INFORMATION
  Report Type: Spontaneous
  Country: US (occurrence: US)
  Receive Date: 20140123
  Receipt Date: 20140123
  Transmission Date: 20141002
  Serious: No
  Sender: FDA-Public Use
  Company Number: US-009507513-1401USA004329

PATIENT
  Sex: Female

DRUGS (1)
  1. LOTRIMIN AF SPRAY POWDER [Suspect]
     Indication: TINEA PEDIS
     Dosage: UNK, UNKNOWN
     Route: 061
     Dates: start: 2013

REACTIONS (4)
  - Hypersensitivity [Unknown]
  - Rash [Unknown]
  - Rash erythematous [Unknown]
  - Activities of daily living impaired [Unknown]
